FAERS Safety Report 7807296-4 (Version None)
Quarter: 2011Q4

REPORT INFORMATION
  Report Type: 
  Country: None (occurrence: None)
  Receive Date: 20111011
  Receipt Date: 20111005
  Transmission Date: 20120403
  Serious: Yes (Other)
  Sender: FDA-Public Use
  Company Number: JP-MERCK-1110USA00981

PATIENT
  Age: 70 Year
  Sex: Male

DRUGS (6)
  1. EMEND [Suspect]
     Indication: PROPHYLAXIS OF NAUSEA AND VOMITING
     Route: 048
     Dates: start: 20110930, end: 20110930
  2. TAXOL [Concomitant]
     Route: 065
  3. OXYCONTIN [Concomitant]
     Route: 065
  4. CISPLATIN [Concomitant]
     Route: 065
  5. TS-1 [Concomitant]
     Route: 065
  6. FENTANYL [Concomitant]
     Route: 065

REACTIONS (1)
  - RESPIRATORY ARREST [None]
